FAERS Safety Report 23324409 (Version 1)
Quarter: 2023Q4

REPORT INFORMATION
  Report Type: Spontaneous
  Country: CN (occurrence: CN)
  Receive Date: 20231221
  Receipt Date: 20231221
  Transmission Date: 20240110
  Serious: Yes (Other)
  Sender: FDA-Public Use
  Company Number: CN-AstraZeneca-2023-72687

PATIENT

DRUGS (2)
  1. METOPROLOL SUCCINATE [Suspect]
     Active Substance: METOPROLOL SUCCINATE
     Indication: Cardiac failure
     Dosage: 47.5 MILLIGRAM, QD
     Route: 048
     Dates: start: 20230401, end: 20231129
  2. IOPROMIDE [Suspect]
     Active Substance: IOPROMIDE
     Indication: Laser speckle contrast imaging
     Dosage: 100 MILLILITER, QD
     Route: 042
     Dates: start: 20230401, end: 20230401

REACTIONS (1)
  - Renal impairment [Unknown]

NARRATIVE: CASE EVENT DATE: 20231129
